FAERS Safety Report 20880746 (Version 1)
Quarter: 2022Q2

REPORT INFORMATION
  Report Type: Spontaneous
  Country: US (occurrence: US)
  Receive Date: 20220526
  Receipt Date: 20220526
  Transmission Date: 20220721
  Serious: No
  Sender: FDA-Public Use
  Company Number: US-RADIUS HEALTH INC.-2021US004349

PATIENT
  Sex: Female
  Weight: 48.073 kg

DRUGS (1)
  1. TYMLOS [Suspect]
     Active Substance: ABALOPARATIDE
     Indication: Osteoporosis
     Dosage: 80 MCG, DAILY
     Route: 065

REACTIONS (3)
  - Mass [Unknown]
  - Tachycardia [Recovered/Resolved]
  - Abdominal distension [Unknown]
